FAERS Safety Report 23629154 (Version 1)
Quarter: 2024Q1

REPORT INFORMATION
  Report Type: Spontaneous
  Country: IT (occurrence: IT)
  Receive Date: 20240313
  Receipt Date: 20240313
  Transmission Date: 20240410
  Serious: Yes (Other)
  Sender: FDA-Public Use
  Company Number: IT-MLMSERVICE-20240222-4844732-1

PATIENT
  Age: 63 Year
  Sex: Male

DRUGS (11)
  1. TRETINOIN [Suspect]
     Active Substance: TRETINOIN
     Indication: Acute promyelocytic leukaemia
     Dosage: 45 MILLIGRAM/SQ. METER, QD
     Route: 048
  2. TRETINOIN [Suspect]
     Active Substance: TRETINOIN
     Dosage: 45 MILLIGRAM/SQ. METER, QD, EVERY 3 MONTHS FOR A TOTAL OF 2 YEARS
     Route: 048
  3. CYTARABINE [Suspect]
     Active Substance: CYTARABINE
     Indication: Acute promyelocytic leukaemia
     Dosage: 2250 MILLIGRAM/SQ. METER, EVERY 8 HOURS ON DAYS 1, 2, 3, 4, AND 5
     Route: 042
  4. CYTARABINE [Suspect]
     Active Substance: CYTARABINE
     Dosage: 4 GRAM PER SQUARE METRE, DAYS 1, 2, 3, AND 4
     Route: 042
  5. ETOPOSIDE [Suspect]
     Active Substance: ETOPOSIDE
     Indication: Acute promyelocytic leukaemia
     Dosage: 500 MILLIGRAM/SQ. METER
     Route: 065
  6. IDARUBICIN [Suspect]
     Active Substance: IDARUBICIN
     Indication: Acute promyelocytic leukaemia
     Dosage: 12 MILLIGRAM/SQ. METER, QD
     Route: 042
  7. IDARUBICIN [Suspect]
     Active Substance: IDARUBICIN
     Dosage: 48 MILLIGRAM/SQ. METER, ON DAYS 2, 4, 6, 8
     Route: 042
  8. MERCAPTOPURINE [Suspect]
     Active Substance: MERCAPTOPURINE
     Indication: Acute promyelocytic leukaemia
     Dosage: 50 MILLIGRAM/SQ. METER
     Route: 048
  9. METHOTREXATE [Suspect]
     Active Substance: METHOTREXATE
     Indication: Acute promyelocytic leukaemia
     Dosage: 15 MILLIGRAM/SQ. METER, MAINTENANCE THERAPY
     Route: 030
  10. MITOXANTRONE [Suspect]
     Active Substance: MITOXANTRONE HYDROCHLORIDE
     Indication: Acute promyelocytic leukaemia
     Dosage: 50 MILLIGRAM/SQ. METER, ON DAYS 1, 2, 3, 4, AND 5
     Route: 065
  11. THIOGUANINE [Suspect]
     Active Substance: THIOGUANINE
     Indication: Acute promyelocytic leukaemia
     Dosage: 1050 MILLIGRAM/SQ. METER, EVERY 8 HOURS ON DAYS 1, 2, 3, 4, AND5
     Route: 065

REACTIONS (1)
  - Acute myeloid leukaemia [Unknown]

NARRATIVE: CASE EVENT DATE: 20220101
